FAERS Safety Report 8823467 (Version 1)
Quarter: 2012Q4

REPORT INFORMATION
  Report Type: 
  Country: US (occurrence: US)
  Receive Date: 20121003
  Receipt Date: 20121003
  Transmission Date: 20130627
  Serious: No
  Sender: FDA-Public Use
  Company Number: US-009507513-1209USA008821

PATIENT
  Age: 52 Year
  Sex: Female
  Weight: 99.77 kg

DRUGS (10)
  1. VICTRELIS [Suspect]
     Dosage: 800 mg, tid, (four 200 mg capsules)
     Route: 048
     Dates: start: 20120215
  2. PEGASYS [Suspect]
     Dosage: UNK
  3. RIBAPAK [Suspect]
     Dosage: 1200
  4. NEUPOGEN [Concomitant]
     Dosage: 480/0.8
  5. WELLBUTRIN [Concomitant]
     Dosage: 100 mg, UNK
  6. ZANTAC [Concomitant]
     Dosage: 75
  7. METFORMIN [Concomitant]
     Dosage: 1000 mg, UNK
  8. VITAMIN D (UNSPECIFIED) [Concomitant]
     Dosage: 1000 units
  9. VITAMINS (UNSPECIFIED) [Concomitant]
  10. ZOFRAN [Concomitant]
     Dosage: 24 mg, UNK

REACTIONS (4)
  - Cardiac murmur [Recovered/Resolved]
  - Dyspnoea [Recovered/Resolved]
  - Asthenia [Recovered/Resolved]
  - Haemoglobin decreased [Recovered/Resolved]
